FAERS Safety Report 11681755 (Version 5)
Quarter: 2016Q2

REPORT INFORMATION
  Report Type: Report from Study
  Country: US (occurrence: US)
  Receive Date: 20151029
  Receipt Date: 20160428
  Transmission Date: 20160815
  Serious: Yes (Other)
  Sender: FDA-Public Use
  Company Number: PHHY2015US041384

PATIENT
  Age: 61 Year
  Sex: Female

DRUGS (1)
  1. GILENYA [Suspect]
     Active Substance: FINGOLIMOD HYDROCHLORIDE
     Indication: MULTIPLE SCLEROSIS
     Dosage: UNK
     Route: 048

REACTIONS (17)
  - Vitamin D deficiency [Unknown]
  - Gait disturbance [Unknown]
  - Sensory disturbance [Unknown]
  - Muscle spasms [Unknown]
  - Fatigue [Unknown]
  - Multiple sclerosis relapse [Recovered/Resolved]
  - Muscle tightness [Recovered/Resolved]
  - Blindness [Unknown]
  - Injection site erythema [Unknown]
  - Vertigo [Recovered/Resolved]
  - Optic neuritis [Recovered/Resolved]
  - Headache [Unknown]
  - Contusion [Recovered/Resolved]
  - Myalgia [Recovered/Resolved]
  - Muscle spasms [Recovered/Resolved]
  - Dysphagia [Recovered/Resolved]
  - Micturition urgency [Unknown]

NARRATIVE: CASE EVENT DATE: 20140914
